FAERS Safety Report 15977961 (Version 2)
Quarter: 2019Q1

REPORT INFORMATION
  Report Type: Spontaneous
  Country: JP (occurrence: JP)
  Receive Date: 20190218
  Receipt Date: 20190326
  Transmission Date: 20190418
  Serious: Yes (Life-Threatening)
  Sender: FDA-Public Use
  Company Number: JP-ROCHE-2268076

PATIENT
  Age: 51 Year
  Sex: Female
  Weight: 66 kg

DRUGS (9)
  1. XELODA [Suspect]
     Active Substance: CAPECITABINE
     Indication: COLON CANCER
     Dosage: 13 COURSES. ?MOST RECENT DOSE: 21/DEC/2018
     Route: 048
     Dates: start: 201803, end: 20181221
  2. AVASTIN [Suspect]
     Active Substance: BEVACIZUMAB
     Indication: COLON CANCER
     Dosage: 13 COURSES.?MOST RECENT DOSE: 21/DEC/2018
     Route: 041
     Dates: start: 20180316
  3. CYMBALTA [Concomitant]
     Active Substance: DULOXETINE HYDROCHLORIDE
     Dosage: DOSE INTERVAL UNCERTAINTY
     Route: 065
  4. EMEND [Concomitant]
     Active Substance: APREPITANT
     Dosage: DOSE INTERVAL UNCERTAINTY
     Route: 065
  5. EMEND [Concomitant]
     Active Substance: APREPITANT
     Dosage: DOSE INTERVAL UNCERTAINTY
     Route: 065
  6. OXALIPLATIN. [Concomitant]
     Active Substance: OXALIPLATIN
  7. ELPLAT [Suspect]
     Active Substance: OXALIPLATIN
     Indication: COLON CANCER
     Dosage: MOST RECENT DOSE: 21/DEC/2018?13 COURSES
     Route: 041
     Dates: start: 20180316, end: 20181221
  8. DECADRON [Concomitant]
     Active Substance: DEXAMETHASONE
     Dosage: DOSE INTERVAL UNCERTAINTY
     Route: 065
  9. MIYA-BM [Concomitant]
     Active Substance: CLOSTRIDIUM BUTYRICUM SPORES STRAIN M-55
     Dosage: DOSE INTERVAL UNCERTAINTY
     Route: 048
     Dates: start: 20180317

REACTIONS (3)
  - Tumour perforation [Recovered/Resolved]
  - Retroperitoneal abscess [Recovered/Resolved]
  - Drug hypersensitivity [Unknown]

NARRATIVE: CASE EVENT DATE: 20181221
